FAERS Safety Report 4999737-5 (Version None)
Quarter: 2006Q2

REPORT INFORMATION
  Report Type: 
  Country: None (occurrence: None)
  Receive Date: 20060511
  Receipt Date: 20060509
  Transmission Date: 20061013
  Serious: Yes (Other)
  Sender: FDA-Public Use
  Company Number: US-GLAXOSMITHKLINE-A0604881A

PATIENT
  Age: 49 Year
  Sex: Female

DRUGS (3)
  1. COREG [Suspect]
     Dosage: 3.125MG TWICE PER DAY
     Route: 048
  2. CHEMOTHERAPY [Concomitant]
     Indication: BREAST CANCER
  3. RADIATION [Concomitant]
     Indication: BREAST CANCER

REACTIONS (2)
  - MENSTRUATION IRREGULAR [None]
  - POSTMENOPAUSAL HAEMORRHAGE [None]
